FAERS Safety Report 5618622-9 (Version None)
Quarter: 2008Q1

REPORT INFORMATION
  Report Type: 
  Country: None (occurrence: None)
  Receive Date: 20080205
  Receipt Date: 20080205
  Transmission Date: 20080703
  Serious: No
  Sender: FDA-Public Use
  Company Number: None

PATIENT
  Age: 44 Year
  Sex: Female
  Weight: 86.1834 kg

DRUGS (1)
  1. ZICAM COLD REMEDY MATRIXX [Suspect]
     Indication: NASOPHARYNGITIS
     Dosage: 1 SQUIRT EVERY 4 HOURS NASAL
     Route: 045
     Dates: start: 20071226, end: 20071229

REACTIONS (2)
  - AGEUSIA [None]
  - ANOSMIA [None]
